FAERS Safety Report 5780727-X (Version None)
Quarter: 2008Q2

REPORT INFORMATION
  Report Type: 
  Country: None (occurrence: None)
  Receive Date: 20080620
  Receipt Date: 20080527
  Transmission Date: 20081010
  Serious: No
  Sender: FDA-Public Use
  Company Number: US-BAYER-200824314NA

PATIENT
  Age: 15 Year
  Sex: Female

DRUGS (3)
  1. YAZ [Suspect]
     Indication: CONTRACEPTION
     Route: 048
     Dates: start: 20070901
  2. SLEEPING PILLS NOS [Concomitant]
     Dates: start: 20070501
  3. WELLBUTRIN [Concomitant]
     Indication: PERSONALITY DISORDER
     Dates: start: 20070501

REACTIONS (3)
  - AMENORRHOEA [None]
  - METRORRHAGIA [None]
  - VULVOVAGINAL MYCOTIC INFECTION [None]
